FAERS Safety Report 9562095 (Version 3)
Quarter: 2013Q4

REPORT INFORMATION
  Report Type: Spontaneous
  Country: US (occurrence: US)
  Receive Date: 20130927
  Receipt Date: 20131126
  Transmission Date: 20140711
  Serious: Yes (Other)
  Sender: FDA-Public Use
  Company Number: US-PFIZER INC-2013276916

PATIENT
  Sex: Female

DRUGS (1)
  1. VISTARIL [Suspect]
     Dosage: UNK

REACTIONS (3)
  - Hypoacusis [Unknown]
  - Tremor [Unknown]
  - Anxiety [Unknown]
